FAERS Safety Report 4945232-9 (Version None)
Quarter: 2006Q1

REPORT INFORMATION
  Report Type: 
  Country: None (occurrence: None)
  Receive Date: 20060315
  Receipt Date: 20060315
  Transmission Date: 20060701
  Serious: Yes (Life-Threatening)
  Sender: FDA-Public Use
  Company Number: None

PATIENT
  Age: 66 Year
  Sex: Male
  Weight: 62.1428 kg

DRUGS (2)
  1. LEVAQUIN [Suspect]
     Indication: BIOPSY
     Dosage: 500 MG ONCE ORAL
     Route: 048
     Dates: start: 20060124
  2. LEVAQUIN [Suspect]
     Indication: PROPHYLAXIS
     Dosage: 500 MG ONCE ORAL
     Route: 048
     Dates: start: 20060124

REACTIONS (14)
  - ABDOMINAL PAIN [None]
  - ANAPHYLACTIC REACTION [None]
  - ANGIONEUROTIC OEDEMA [None]
  - CIRCULATORY COLLAPSE [None]
  - DISORIENTATION [None]
  - FALL [None]
  - FLUSHING [None]
  - HYPERHIDROSIS [None]
  - HYPOTENSION [None]
  - HYPOTHERMIA [None]
  - LOSS OF CONSCIOUSNESS [None]
  - OEDEMA PERIPHERAL [None]
  - PRURITUS [None]
  - VOMITING [None]
